FAERS Safety Report 13247358 (Version 3)
Quarter: 2017Q1

REPORT INFORMATION
  Report Type: Report from Study
  Country: US (occurrence: US)
  Receive Date: 20170217
  Receipt Date: 20170315
  Transmission Date: 20170428
  Serious: Yes (Hospitalization)
  Sender: FDA-Public Use
  Company Number: US-US WORLDMEDS, LLC-USW201702-000212

PATIENT
  Sex: Male

DRUGS (8)
  1. APOKYN [Suspect]
     Active Substance: APOMORPHINE HYDROCHLORIDE
     Indication: PARKINSON^S DISEASE
     Route: 058
     Dates: start: 20161020
  2. CLONAZEPAM. [Concomitant]
     Active Substance: CLONAZEPAM
  3. NEUPRO [Concomitant]
     Active Substance: ROTIGOTINE
  4. AMANTADINE [Concomitant]
     Active Substance: AMANTADINE
  5. AZILECT [Concomitant]
     Active Substance: RASAGILINE MESYLATE
  6. SINEMET [Concomitant]
     Active Substance: CARBIDOPA\LEVODOPA
  7. TOPAMAX [Concomitant]
     Active Substance: TOPIRAMATE
  8. FENTANYL. [Concomitant]
     Active Substance: FENTANYL

REACTIONS (1)
  - Small intestinal resection [Not Recovered/Not Resolved]
